FAERS Safety Report 7605707-0 (Version None)
Quarter: 2011Q3

REPORT INFORMATION
  Report Type: 
  Country: None (occurrence: None)
  Receive Date: 20110713
  Receipt Date: 20110707
  Transmission Date: 20111222
  Serious: Yes (Hospitalization)
  Sender: FDA-Public Use
  Company Number: ES-PFIZER INC-2011153948

PATIENT

DRUGS (1)
  1. TEMSIROLIMUS [Suspect]
     Indication: RENAL CANCER METASTATIC

REACTIONS (1)
  - HYPERTHERMIA [None]
